FAERS Safety Report 13742406 (Version 2)
Quarter: 2017Q3

REPORT INFORMATION
  Report Type: Spontaneous
  Country: US (occurrence: US)
  Receive Date: 20170711
  Receipt Date: 20170728
  Transmission Date: 20171127
  Serious: Yes (Other)
  Sender: FDA-Public Use
  Company Number: US-BRISTOL-MYERS SQUIBB COMPANY-BMS-2017-059418

PATIENT
  Sex: Female
  Weight: 78 kg

DRUGS (1)
  1. YERVOY [Suspect]
     Active Substance: IPILIMUMAB
     Indication: MALIGNANT MELANOMA
     Dosage: 800 MG, Q3WK
     Route: 042
     Dates: start: 20170420

REACTIONS (2)
  - Autoimmune hepatitis [Unknown]
  - Prescribed overdose [Unknown]
